FAERS Safety Report 9971025 (Version 1)
Quarter: 2014Q1

REPORT INFORMATION
  Report Type: Report from Study
  Country: US (occurrence: US)
  Receive Date: 20140306
  Receipt Date: 20140306
  Transmission Date: 20141002
  Serious: No
  Sender: FDA-Public Use
  Company Number: US-ABBVIE-13P-163-1153369-00

PATIENT
  Age: 54 Year
  Sex: Male

DRUGS (12)
  1. HUMIRA [Suspect]
     Indication: RHEUMATOID ARTHRITIS
     Dates: start: 20130902
  2. METHOTREXATE [Concomitant]
     Indication: PRODUCT USED FOR UNKNOWN INDICATION
  3. PROPANOLOL [Concomitant]
     Indication: MIGRAINE
  4. TEMAZEPAM [Concomitant]
     Indication: ANXIETY
  5. CODEINE/ACETAMINOPHEN [Concomitant]
     Indication: ARTHRALGIA
  6. LORATIDINE [Concomitant]
     Indication: RASH PRURITIC
     Dosage: 1 BY MOUTH, AT BEDTIME
  7. DIPHENHYDRAMINE [Concomitant]
     Indication: PRURITUS
     Dosage: 25 TO 50 MG AT BEDTIME
  8. FOLIC ACID [Concomitant]
     Indication: PRODUCT USED FOR UNKNOWN INDICATION
  9. REFRESH EYE DROPS (OTC) [Concomitant]
     Indication: DRY EYE
  10. VITAMIN D [Concomitant]
     Indication: PRODUCT USED FOR UNKNOWN INDICATION
  11. MVI [Concomitant]
     Indication: VITAMIN SUPPLEMENTATION
     Dosage: 1 BY MOUTH DAILY
  12. CALCIUM [Concomitant]
     Indication: MINERAL SUPPLEMENTATION

REACTIONS (1)
  - Injection site pain [Recovered/Resolved]
